FAERS Safety Report 13988564 (Version 1)
Quarter: 2017Q3

REPORT INFORMATION
  Report Type: Spontaneous
  Country: US (occurrence: US)
  Receive Date: 20170919
  Receipt Date: 20170919
  Transmission Date: 20171128
  Serious: Yes (Hospitalization)
  Sender: FDA-Public Use
  Company Number: US-ACTELION-A-NJ2017-159515

PATIENT
  Age: 40 Year
  Sex: Male

DRUGS (1)
  1. ZAVESCA [Suspect]
     Active Substance: MIGLUSTAT
     Indication: TYPE V HYPERLIPIDAEMIA
     Dosage: 100 MCG, Q4HRS
     Route: 048
     Dates: start: 20110422

REACTIONS (1)
  - Seizure [Unknown]
